FAERS Safety Report 19056009 (Version 2)
Quarter: 2022Q1

REPORT INFORMATION
  Report Type: Report from Study
  Country: US (occurrence: US)
  Receive Date: 20210324
  Receipt Date: 20220302
  Transmission Date: 20220423
  Serious: Yes (Hospitalization, Other)
  Sender: FDA-Public Use
  Company Number: US-NPS_PHARMACEUTICALS-002050

PATIENT
  Age: 49 Year
  Sex: Female
  Weight: 55 kg

DRUGS (26)
  1. TEDUGLUTIDE [Suspect]
     Active Substance: TEDUGLUTIDE
     Indication: Short-bowel syndrome
     Dosage: 2.8 MILLIGRAM, QD
     Route: 058
     Dates: start: 20131020, end: 20150202
  2. TEDUGLUTIDE [Suspect]
     Active Substance: TEDUGLUTIDE
     Indication: Short-bowel syndrome
     Dosage: 2.8 MILLIGRAM, QD
     Route: 058
     Dates: start: 20131020, end: 20150202
  3. TEDUGLUTIDE [Suspect]
     Active Substance: TEDUGLUTIDE
     Indication: Short-bowel syndrome
     Dosage: 2.8 MILLIGRAM, QD
     Route: 058
     Dates: start: 20131020, end: 20150202
  4. TEDUGLUTIDE [Suspect]
     Active Substance: TEDUGLUTIDE
     Indication: Short-bowel syndrome
     Dosage: 2.8 MILLIGRAM, QD
     Route: 058
     Dates: start: 20131020, end: 20150202
  5. TEDUGLUTIDE [Suspect]
     Active Substance: TEDUGLUTIDE
     Dosage: 2.8 MG, 3 DAYS PER WEEK
     Route: 058
     Dates: start: 20150202
  6. TEDUGLUTIDE [Suspect]
     Active Substance: TEDUGLUTIDE
     Dosage: 2.8 MG, 3 DAYS PER WEEK
     Route: 058
     Dates: start: 20150202
  7. TEDUGLUTIDE [Suspect]
     Active Substance: TEDUGLUTIDE
     Dosage: 2.8 MG, 3 DAYS PER WEEK
     Route: 058
     Dates: start: 20150202
  8. TEDUGLUTIDE [Suspect]
     Active Substance: TEDUGLUTIDE
     Dosage: 2.8 MG, 3 DAYS PER WEEK
     Route: 058
     Dates: start: 20150202
  9. TEDUGLUTIDE [Suspect]
     Active Substance: TEDUGLUTIDE
     Dosage: 2.8 MILLIGRAM, Q3WEEKS
     Route: 065
     Dates: start: 20150203, end: 201511
  10. TEDUGLUTIDE [Suspect]
     Active Substance: TEDUGLUTIDE
     Dosage: 2.8 MILLIGRAM, Q3WEEKS
     Route: 065
     Dates: start: 20150203, end: 201511
  11. TEDUGLUTIDE [Suspect]
     Active Substance: TEDUGLUTIDE
     Dosage: 2.8 MILLIGRAM, Q3WEEKS
     Route: 065
     Dates: start: 20150203, end: 201511
  12. TEDUGLUTIDE [Suspect]
     Active Substance: TEDUGLUTIDE
     Dosage: 2.8 MILLIGRAM, Q3WEEKS
     Route: 065
     Dates: start: 20150203, end: 201511
  13. TPN [Concomitant]
     Active Substance: AMINO ACIDS\DEXTROSE\ELECTROLYTES NOS\SOYBEAN OIL
     Indication: Nutritional supplementation
     Dosage: 1.5 L, TWO DAYS A WEEK
     Dates: start: 20141231, end: 20150406
  14. TPN [Concomitant]
     Active Substance: AMINO ACIDS\DEXTROSE\ELECTROLYTES NOS\SOYBEAN OIL
     Dosage: 0.78 L,  5 DAYS PER WEEK
     Dates: start: 20150407, end: 20150521
  15. TPN [Concomitant]
     Active Substance: AMINO ACIDS\DEXTROSE\ELECTROLYTES NOS\SOYBEAN OIL
     Dosage: 1.1 L, 3 DAYS PER WEEK
     Dates: start: 20150522, end: 20151006
  16. TPN [Concomitant]
     Active Substance: AMINO ACIDS\DEXTROSE\ELECTROLYTES NOS\SOYBEAN OIL
     Dosage: 1.5 L, 1X/DAY:QD
     Dates: start: 20150309, end: 20150310
  17. PREVACID [Concomitant]
     Active Substance: LANSOPRAZOLE
     Indication: Gastrooesophageal reflux disease
     Dosage: 30 MILLIGRAM
     Route: 048
     Dates: start: 20130124
  18. KETAMINE HCL 100% [Concomitant]
     Indication: Pain
     Dosage: 100 DF, 1X/DAY:QD
     Route: 061
     Dates: start: 20140711
  19. MILK THISTLE PLUS                  /08512201/ [Concomitant]
     Indication: Phytotherapy
     Dosage: UNK, 1X/DAY:QD
     Route: 048
     Dates: start: 20140711
  20. MULTIVITAMIN                       /00097801/ [Concomitant]
     Indication: Prophylaxis
     Dosage: UNK, 1X/DAY:QD
     Route: 048
     Dates: start: 20140711
  21. HUMAN IMMUNOGLOBULIN G [Concomitant]
     Active Substance: HUMAN IMMUNOGLOBULIN G
     Indication: Myasthenic syndrome
     Dosage: UNK, AS REQ^D
     Route: 042
     Dates: start: 20150223, end: 20150615
  22. LOPERAMIDE [Concomitant]
     Active Substance: LOPERAMIDE
     Indication: Product used for unknown indication
     Dosage: 2 MG, 3X/DAY:TID
     Route: 048
     Dates: start: 20150311, end: 20150311
  23. LIDOCAINE [Concomitant]
     Active Substance: LIDOCAINE
     Indication: Hepatic encephalopathy
     Dosage: UNK UNK, QD
     Route: 065
     Dates: start: 20200902, end: 20200902
  24. ASPIRIN [Concomitant]
     Active Substance: ASPIRIN
     Indication: Hepatic encephalopathy
     Dosage: 81 MILLIGRAM
     Route: 048
     Dates: start: 20200902, end: 20200902
  25. LEVETIRACETAM [Concomitant]
     Active Substance: LEVETIRACETAM
     Indication: Hepatic encephalopathy
     Dosage: 750 MILLIGRAM, BID
     Route: 048
     Dates: start: 20200902, end: 20200902
  26. TACROLIMUS [Concomitant]
     Active Substance: TACROLIMUS
     Indication: Hepatic encephalopathy
     Dosage: 2 MILLIGRAM, BID
     Route: 048
     Dates: start: 20200902, end: 20200902

REACTIONS (3)
  - Bacteraemia [Recovered/Resolved]
  - Streptococcal infection [Recovered/Resolved]
  - Vascular device infection [Recovered/Resolved]

NARRATIVE: CASE EVENT DATE: 20150309
